FAERS Safety Report 5846979-2 (Version None)
Quarter: 2008Q3

REPORT INFORMATION
  Report Type: 
  Country: None (occurrence: None)
  Receive Date: 20080815
  Receipt Date: 20080808
  Transmission Date: 20090109
  Serious: Yes (Other)
  Sender: FDA-Public Use
  Company Number: RO-PFIZER INC-2008066307

PATIENT
  Sex: Male
  Weight: 80 kg

DRUGS (5)
  1. CHANTIX [Suspect]
     Route: 048
     Dates: start: 20080730, end: 20080803
  2. INDAPAMIDE [Concomitant]
     Route: 048
  3. ASPACARDIN [Concomitant]
     Route: 048
  4. AMLODIPINE [Concomitant]
     Route: 048
  5. FAMOTIDINE [Concomitant]
     Route: 048

REACTIONS (3)
  - ABDOMINAL PAIN UPPER [None]
  - MELAENA [None]
  - UPPER GASTROINTESTINAL HAEMORRHAGE [None]
